FAERS Safety Report 12165367 (Version 3)
Quarter: 2016Q3

REPORT INFORMATION
  Report Type: Report from Study
  Country: US (occurrence: US)
  Receive Date: 20160309
  Receipt Date: 20160707
  Transmission Date: 20161109
  Serious: Yes (Other)
  Sender: FDA-Public Use
  Company Number: PHEH2016US005666

PATIENT
  Age: 28 Year
  Sex: Male

DRUGS (2)
  1. VITAMIN D [Concomitant]
     Active Substance: CHOLECALCIFEROL
     Indication: PRODUCT USED FOR UNKNOWN INDICATION
     Dosage: UNK
     Route: 065
  2. GILENYA [Suspect]
     Active Substance: FINGOLIMOD HYDROCHLORIDE
     Indication: MULTIPLE SCLEROSIS
     Dosage: 0.5 MG, QD
     Route: 048
     Dates: start: 20160305

REACTIONS (14)
  - Hypoaesthesia [Unknown]
  - Balance disorder [Unknown]
  - Paraesthesia [Unknown]
  - Depressed mood [Unknown]
  - Heart rate decreased [Recovered/Resolved]
  - Hand-eye coordination impaired [Unknown]
  - Musculoskeletal stiffness [Unknown]
  - Fatigue [Recovered/Resolved]
  - Chest discomfort [Unknown]
  - Heart rate decreased [Unknown]
  - Multiple sclerosis relapse [Unknown]
  - Influenza like illness [Recovered/Resolved]
  - Disturbance in attention [Unknown]
  - Dyspnoea [Unknown]

NARRATIVE: CASE EVENT DATE: 201603
